FAERS Safety Report 7776359-4 (Version None)
Quarter: 2011Q3

REPORT INFORMATION
  Report Type: 
  Country: None (occurrence: None)
  Receive Date: 20110926
  Receipt Date: 20110916
  Transmission Date: 20111222
  Serious: Yes (Other)
  Sender: FDA-Public Use
  Company Number: US-JNJFOC-20110907926

PATIENT
  Sex: Female

DRUGS (2)
  1. ADRIAMYCIN PFS [Suspect]
     Indication: ENDOMETRIAL CANCER METASTATIC
     Route: 065
     Dates: start: 20110101
  2. DOXORUBICIN HCL [Suspect]
     Indication: ENDOMETRIAL CANCER METASTATIC
     Route: 042
     Dates: start: 20110203

REACTIONS (2)
  - ASCITES [None]
  - PAIN [None]
